FAERS Safety Report 15479523 (Version 3)
Quarter: 2018Q4

REPORT INFORMATION
  Report Type: Spontaneous
  Country: DE (occurrence: DE)
  Receive Date: 20181009
  Receipt Date: 20181025
  Transmission Date: 20190205
  Serious: Yes (Other)
  Sender: FDA-Public Use
  Company Number: DE-MYLANLABS-2018M1074177

PATIENT

DRUGS (4)
  1. IDARUBICIN [Suspect]
     Active Substance: IDARUBICIN
     Indication: EWING^S SARCOMA
     Dosage: 5.5 MG/M2, UNK
     Route: 048
  2. PACLITAXEL. [Suspect]
     Active Substance: PACLITAXEL
     Indication: EWING^S SARCOMA
     Dosage: 175 MG/M2, UNK
     Route: 042
  3. VORINOSTAT [Suspect]
     Active Substance: VORINOSTAT
     Indication: EWING^S SARCOMA
     Dosage: 100 MG, UNK
     Route: 048
  4. ICLUSIG [Suspect]
     Active Substance: PONATINIB
     Indication: EWING^S SARCOMA
     Dosage: 15 MG, UNK
     Route: 048

REACTIONS (4)
  - Neutropenia [Unknown]
  - Malignant neoplasm progression [Unknown]
  - Lymphopenia [Unknown]
  - Product use in unapproved indication [Unknown]
